FAERS Safety Report 4799677-0 (Version None)
Quarter: 2005Q4

REPORT INFORMATION
  Report Type: 
  Country: None (occurrence: None)
  Receive Date: 20051013
  Receipt Date: 20050927
  Transmission Date: 20060501
  Serious: Yes (Hospitalization)
  Sender: FDA-Public Use
  Company Number: 2005136471

PATIENT
  Age: 78 Year
  Sex: Female

DRUGS (8)
  1. CAMPTOSAR [Suspect]
     Indication: ILL-DEFINED DISORDER
     Dosage: 480 MG (CYCLIC), INTRAVENOUS
     Route: 042
     Dates: start: 20050624
  2. CETUXIMAB (CETUXIMAB) [Suspect]
     Indication: ILL-DEFINED DISORDER
     Dosage: 640 MG (CYCLIC), INTRAVENOUS
     Route: 042
     Dates: start: 20050624
  3. KARDEGIC (ACETYLSALICYLATE LYSINE) [Concomitant]
  4. EUPRESSYL (URAPIDIL) [Concomitant]
  5. COVERSYL (PERINDOPRIL) [Concomitant]
  6. LOPERAMIDE HCL [Concomitant]
  7. ATARAX [Concomitant]
  8. TRAMADOL HCL [Concomitant]

REACTIONS (2)
  - ATRIAL FIBRILLATION [None]
  - MALAISE [None]
